FAERS Safety Report 24761332 (Version 1)
Quarter: 2024Q4

REPORT INFORMATION
  Report Type: Spontaneous
  Country: CA (occurrence: CA)
  Receive Date: 20241220
  Receipt Date: 20241220
  Transmission Date: 20250114
  Serious: Yes (Hospitalization)
  Sender: HLS THERAPEUTICS
  Company Number: CA-HLS-202403135

PATIENT
  Sex: Male

DRUGS (1)
  1. CLOZAPINE [Suspect]
     Active Substance: CLOZAPINE
     Indication: Product used for unknown indication
     Dosage: TABLETS DOSAGE FORM?THERAPY DURATION: 16 YEARS
     Route: 065

REACTIONS (3)
  - C-reactive protein increased [Unknown]
  - Hospitalisation [Unknown]
  - Troponin increased [Unknown]
